FAERS Safety Report 8812441 (Version 1)
Quarter: 2012Q4

REPORT INFORMATION
  Report Type: 
  Country: US (occurrence: US)
  Receive Date: 20120927
  Receipt Date: 20120927
  Transmission Date: 20130627
  Serious: Yes (Death, Hospitalization, Other)
  Sender: FDA-Public Use
  Company Number: US-ROCHE-1126644

PATIENT
  Sex: Female

DRUGS (5)
  1. AVASTIN [Suspect]
     Indication: BREAST CANCER FEMALE
     Route: 065
  2. TAXOL [Concomitant]
  3. OXYGEN [Concomitant]
  4. COUMADIN [Concomitant]
  5. DOXIL (UNITED STATES) [Concomitant]

REACTIONS (5)
  - Death [Fatal]
  - Disease progression [Unknown]
  - Pulmonary embolism [Unknown]
  - Dyspnoea [Unknown]
  - Pain in extremity [Unknown]
